FAERS Safety Report 4756137-0 (Version None)
Quarter: 2005Q3

REPORT INFORMATION
  Report Type: 
  Country: None (occurrence: None)
  Receive Date: 20050830
  Receipt Date: 20050819
  Transmission Date: 20060218
  Serious: Yes (Hospitalization)
  Sender: FDA-Public Use
  Company Number: 2005UW12507

PATIENT
  Age: 25635 Day
  Sex: Female
  Weight: 65 kg

DRUGS (5)
  1. IRESSA [Suspect]
     Indication: BREAST CANCER METASTATIC
     Route: 048
     Dates: start: 20050315, end: 20050818
  2. ARIMIDEX [Suspect]
     Indication: BREAST CANCER METASTATIC
     Route: 048
     Dates: start: 20050315, end: 20050818
  3. LISINOPRIL [Suspect]
     Indication: HYPERTENSION
     Route: 048
     Dates: start: 20021001
  4. COUMADIN [Suspect]
     Indication: THROMBOSIS PROPHYLAXIS
     Route: 048
     Dates: start: 20050315
  5. ASPIRIN [Suspect]
     Indication: HYPERTENSION
     Route: 048
     Dates: start: 19980101

REACTIONS (1)
  - ISCHAEMIC STROKE [None]
